FAERS Safety Report 20744013 (Version 5)
Quarter: 2023Q1

REPORT INFORMATION
  Report Type: Spontaneous
  Country: JP (occurrence: JP)
  Receive Date: 20220425
  Receipt Date: 20230302
  Transmission Date: 20230417
  Serious: Yes (Hospitalization, Other)
  Sender: FDA-Public Use
  Company Number: JP-ONO-2022JP009873

PATIENT
  Age: 8 Decade
  Sex: Male

DRUGS (1)
  1. OPDIVO [Suspect]
     Active Substance: NIVOLUMAB
     Indication: Oesophageal carcinoma
     Dosage: 240 MG, Q2W
     Route: 041

REACTIONS (5)
  - Renal tubular necrosis [Recovering/Resolving]
  - Chondritis [Recovering/Resolving]
  - C-reactive protein increased [Unknown]
  - Fatigue [Unknown]
  - Pneumonia aspiration [Unknown]
